FAERS Safety Report 4953114-1 (Version None)
Quarter: 2006Q1

REPORT INFORMATION
  Report Type: 
  Country: None (occurrence: None)
  Receive Date: 20060324
  Receipt Date: 20060316
  Transmission Date: 20060701
  Serious: Yes (Hospitalization, Disabling)
  Sender: FDA-Public Use
  Company Number: 2006SE01573

PATIENT
  Age: 17167 Day
  Sex: Male
  Weight: 82 kg

DRUGS (1)
  1. ZOMIG [Suspect]
     Indication: MIGRAINE
     Dosage: 1 TABLET AS NEEDED, APP. 50 TABLETS A YEAR
     Route: 048
     Dates: start: 19990101, end: 20060115

REACTIONS (3)
  - APHASIA [None]
  - CEREBRAL INFARCTION [None]
  - HEMIPARESIS [None]
